FAERS Safety Report 6504237-7 (Version None)
Quarter: 2009Q4

REPORT INFORMATION
  Report Type: 
  Country: None (occurrence: None)
  Receive Date: 20091217
  Receipt Date: 20091209
  Transmission Date: 20100525
  Serious: Yes (Hospitalization)
  Sender: FDA-Public Use
  Company Number: US-BAXTER-2009BH018023

PATIENT
  Age: 61 Year
  Sex: Female

DRUGS (4)
  1. DIANEAL [Suspect]
     Indication: PERITONEAL DIALYSIS
     Route: 033
     Dates: end: 20091106
  2. DIANEAL [Suspect]
     Route: 033
     Dates: start: 20091108, end: 20090101
  3. EXTRANEAL [Suspect]
     Indication: PERITONEAL DIALYSIS
     Route: 033
     Dates: start: 20091014, end: 20091106
  4. EXTRANEAL [Suspect]
     Route: 033
     Dates: start: 20091108, end: 20090101

REACTIONS (3)
  - ASCITES [None]
  - HYPOGLYCAEMIA [None]
  - TESTICULAR OEDEMA [None]
